FAERS Safety Report 11348069 (Version 3)
Quarter: 2015Q3

REPORT INFORMATION
  Report Type: Spontaneous
  Country: US (occurrence: US)
  Receive Date: 20150803
  Receipt Date: 20150903
  Transmission Date: 20151125
  Serious: Yes (Other)
  Sender: FDA-Public Use
  Company Number: US-ELI_LILLY_AND_COMPANY-US201202001640

PATIENT
  Age: 81 Year
  Sex: Female

DRUGS (13)
  1. CRESTOR [Concomitant]
     Active Substance: ROSUVASTATIN CALCIUM
  2. TRAZODONE [Concomitant]
     Active Substance: TRAZODONE HYDROCHLORIDE
  3. PREDNISONE. [Concomitant]
     Active Substance: PREDNISONE
  4. ALENDRONATE [Concomitant]
     Active Substance: ALENDRONATE SODIUM
  5. CELEXA [Concomitant]
     Active Substance: CITALOPRAM HYDROBROMIDE
  6. LASIX [Concomitant]
     Active Substance: FUROSEMIDE
  7. LEVOTHYROXINE. [Concomitant]
     Active Substance: LEVOTHYROXINE
  8. KLOR-CON [Concomitant]
     Active Substance: POTASSIUM CHLORIDE
  9. CYMBALTA [Suspect]
     Active Substance: DULOXETINE HYDROCHLORIDE
     Indication: OSTEOARTHRITIS
     Dosage: 60 MG, QD
     Dates: start: 20120101, end: 20120201
  10. ZYPREXA [Suspect]
     Active Substance: OLANZAPINE
     Indication: BIPOLAR DISORDER
     Dosage: 5 MG, QD
     Dates: start: 201111
  11. ASPIRIN                                 /USA/ [Concomitant]
  12. ALBUTEROL. [Concomitant]
     Active Substance: ALBUTEROL
  13. SENNA [Concomitant]
     Active Substance: SENNA LEAF\SENNOSIDES\SENNOSIDES A AND B
     Dosage: UNK, PRN

REACTIONS (1)
  - Seizure [Unknown]
